FAERS Safety Report 9074979 (Version 1)
Quarter: 2013Q1

REPORT INFORMATION
  Report Type: Spontaneous
  Country: US (occurrence: US)
  Receive Date: 20130128
  Receipt Date: 20130128
  Transmission Date: 20140127
  Serious: No
  Sender: FDA-Public Use
  Company Number: US-GLAXOSMITHKLINE-A0965700A

PATIENT
  Age: 52 Year
  Sex: Female

DRUGS (4)
  1. MEPRON [Suspect]
     Indication: LYME DISEASE
     Dosage: 750MG TWICE PER DAY
     Route: 048
     Dates: start: 20120210
  2. AZITHROMYCIN [Suspect]
     Dosage: 250MG TWICE PER DAY
     Route: 048
     Dates: start: 20120210
  3. LEVOTHYROXIN [Concomitant]
  4. CLONAZEPAM [Concomitant]

REACTIONS (5)
  - Back pain [Unknown]
  - Nausea [Unknown]
  - Diarrhoea [Unknown]
  - Headache [Unknown]
  - Vision blurred [Unknown]
